FAERS Safety Report 6925659-6 (Version None)
Quarter: 2010Q3

REPORT INFORMATION
  Report Type: 
  Country: None (occurrence: None)
  Receive Date: 20100813
  Receipt Date: 20100813
  Transmission Date: 20110219
  Serious: Yes (Other)
  Sender: FDA-Public Use
  Company Number: None

PATIENT
  Age: 46 Year
  Sex: Female
  Weight: 102.0593 kg

DRUGS (1)
  1. EVAMIST [Suspect]
     Indication: HYSTERECTOMY
     Dosage: 2 SPRAYS DAILY TOP
     Route: 061
     Dates: start: 20100421, end: 20100812

REACTIONS (2)
  - ACNE [None]
  - NIPPLE SWELLING [None]
